FAERS Safety Report 13241393 (Version 2)
Quarter: 2018Q1

REPORT INFORMATION
  Report Type: Spontaneous
  Country: US (occurrence: US)
  Receive Date: 20170216
  Receipt Date: 20180314
  Transmission Date: 20180508
  Serious: No
  Sender: FDA-Public Use
  Company Number: US-BAYER-2017-031879

PATIENT
  Sex: Female

DRUGS (19)
  1. IRBESARTAN. [Concomitant]
     Active Substance: IRBESARTAN
  2. TIZANIDINE. [Concomitant]
     Active Substance: TIZANIDINE
  3. FUROSEMIDE. [Concomitant]
     Active Substance: FUROSEMIDE
  4. DETROL [Concomitant]
     Active Substance: TOLTERODINE TARTRATE
  5. METOLAZONE. [Concomitant]
     Active Substance: METOLAZONE
  6. NYSTOP [Concomitant]
     Active Substance: NYSTATIN
  7. BETASERON [Suspect]
     Active Substance: INTERFERON BETA-1B
     Indication: MULTIPLE SCLEROSIS
     Dosage: 0.25 MG, QOD
     Route: 058
     Dates: start: 20160812
  8. MELOXICAM. [Concomitant]
     Active Substance: MELOXICAM
  9. LOSARTAN POTASSIUM. [Concomitant]
     Active Substance: LOSARTAN POTASSIUM
  10. FERREX [Concomitant]
     Active Substance: FERRIC POLYSACCHARIDE COMPLEX
  11. KRISTALOSE [Concomitant]
     Active Substance: LACTULOSE
  12. BACLOFEN. [Concomitant]
     Active Substance: BACLOFEN
  13. HYDROCODONE [Concomitant]
     Active Substance: HYDROCODONE
  14. PRISTIQ EXTENDED-RELEASE [Concomitant]
     Active Substance: DESVENLAFAXINE SUCCINATE
  15. OMEPRAZOLE. [Concomitant]
     Active Substance: OMEPRAZOLE
  16. ACETAMINOPHEN. [Concomitant]
     Active Substance: ACETAMINOPHEN
  17. SULFAMETHOXAZOLE/TRIMETHOPRIM [Concomitant]
     Active Substance: SULFAMETHOXAZOLE\TRIMETHOPRIM
  18. BETASERON [Suspect]
     Active Substance: INTERFERON BETA-1B
     Indication: MULTIPLE SCLEROSIS
     Dosage: UNK
  19. ATORVASTATIN CALCIUM. [Concomitant]
     Active Substance: ATORVASTATIN CALCIUM

REACTIONS (1)
  - Rash [Not Recovered/Not Resolved]
